FAERS Safety Report 7919518-X (Version None)
Quarter: 2011Q4

REPORT INFORMATION
  Report Type: 
  Country: None (occurrence: None)
  Receive Date: 20111116
  Receipt Date: 20111116
  Transmission Date: 20120403
  Serious: No
  Sender: FDA-Public Use
  Company Number: None

PATIENT
  Sex: Female
  Weight: 55 kg

DRUGS (1)
  1. XOLAIR [Suspect]
     Dosage: 150 MG Q4W SQ
     Route: 058
     Dates: start: 20110701, end: 20111101

REACTIONS (2)
  - PRURITUS [None]
  - HYPERSENSITIVITY [None]
